FAERS Safety Report 24688358 (Version 1)
Quarter: 2024Q4

REPORT INFORMATION
  Report Type: Spontaneous
  Country: US (occurrence: US)
  Receive Date: 20241202
  Receipt Date: 20241202
  Transmission Date: 20250115
  Serious: No
  Sender: SANOFI AVENTIS
  Company Number: US-SA-2024SA350750

PATIENT
  Age: 1 Year
  Sex: Male

DRUGS (1)
  1. DUPIXENT [Suspect]
     Active Substance: DUPILUMAB
     Indication: Eczema
     Dosage: 200 MG, Q4W
     Route: 058
     Dates: start: 20240926

REACTIONS (8)
  - Discomfort [Unknown]
  - Photosensitivity reaction [Unknown]
  - Periorbital haemorrhage [Unknown]
  - Cough [Unknown]
  - Injection site pain [Unknown]
  - Eczema [Unknown]
  - Pruritus [Unknown]
  - Device use issue [Unknown]

NARRATIVE: CASE EVENT DATE: 20240101
